FAERS Safety Report 8132449-8 (Version None)
Quarter: 2012Q1

REPORT INFORMATION
  Report Type: 
  Country: None (occurrence: None)
  Receive Date: 20120207
  Receipt Date: 20120125
  Transmission Date: 20120608
  Serious: Yes (Other)
  Sender: FDA-Public Use
  Company Number: 2012MA001416

PATIENT
  Age: 54 Year
  Sex: Female

DRUGS (5)
  1. LISINOPRIL [Suspect]
     Dosage: 2.5 MG
     Dates: start: 20071221
  2. HYDROCHLOROTHIAZIDE [Suspect]
     Indication: HYPERTENSION
     Dosage: 12.5 MG;QD
     Dates: start: 20040501
  3. BETA-BLOCKER [Concomitant]
  4. MAGNESIUM CITRATE [Concomitant]
  5. NIFEDIPINE [Suspect]
     Indication: PRODUCT USED FOR UNKNOWN INDICATION
     Dosage: 30 MG
     Dates: start: 20080814

REACTIONS (19)
  - DRUG HYPERSENSITIVITY [None]
  - HEADACHE [None]
  - HEART RATE IRREGULAR [None]
  - EYELID OEDEMA [None]
  - MUSCULOSKELETAL PAIN [None]
  - EYE PAIN [None]
  - MUSCLE SPASMS [None]
  - LETHARGY [None]
  - SKIN TIGHTNESS [None]
  - VISION BLURRED [None]
  - ASTHENIA [None]
  - DIZZINESS [None]
  - SWELLING FACE [None]
  - BURNING SENSATION [None]
  - DYSPNOEA EXERTIONAL [None]
  - BUTTERFLY RASH [None]
  - NECK PAIN [None]
  - SYNCOPE [None]
  - ERYTHEMA OF EYELID [None]
